FAERS Safety Report 5615830-8 (Version None)
Quarter: 2008Q1

REPORT INFORMATION
  Report Type: 
  Country: None (occurrence: None)
  Receive Date: 20080206
  Receipt Date: 20080125
  Transmission Date: 20080703
  Serious: Yes (Life-Threatening, Hospitalization)
  Sender: FDA-Public Use
  Company Number: US-ELI_LILLY_AND_COMPANY-US200801005795

PATIENT
  Age: 65 Year
  Sex: Male
  Weight: 81.633 kg

DRUGS (10)
  1. CYMBALTA [Suspect]
     Indication: NEUROPATHY PERIPHERAL
     Dosage: 60 MG, DAILY (1/D)
     Dates: start: 20070717, end: 20071220
  2. ELAVIL [Concomitant]
     Dosage: 10 MG, UNK
  3. WELLBUTRIN [Concomitant]
     Dosage: 150 MG, UNK
  4. OXYCODONE HCL [Concomitant]
     Dosage: 15 MG, UNK
  5. LUNESTA [Concomitant]
     Dosage: 3 MG, UNK
  6. MECLIZINE [Concomitant]
     Dosage: 25 MG, UNK
  7. PREVACID [Concomitant]
     Dosage: 30 MG, UNK
  8. ASPIRIN [Concomitant]
     Dosage: 81 MG, UNK
  9. ZANAFLEX [Concomitant]
     Dosage: 4 MG, UNK
  10. VITAMIN B COMPLEX CAP [Concomitant]

REACTIONS (13)
  - AMNESIA [None]
  - ANXIETY [None]
  - BLOOD SODIUM DECREASED [None]
  - COLD SWEAT [None]
  - DRUG WITHDRAWAL SYNDROME [None]
  - FATIGUE [None]
  - HOT FLUSH [None]
  - HYPERHIDROSIS [None]
  - INSOMNIA [None]
  - PAIN [None]
  - STOMACH DISCOMFORT [None]
  - SUICIDAL IDEATION [None]
  - TREMOR [None]
